FAERS Safety Report 4837891-6 (Version None)
Quarter: 2005Q4

REPORT INFORMATION
  Report Type: 
  Country: None (occurrence: None)
  Receive Date: 20051123
  Receipt Date: 20051123
  Transmission Date: 20060501
  Serious: Yes (Other)
  Sender: FDA-Public Use
  Company Number: None

PATIENT
  Age: 19 Year
  Sex: Female
  Weight: 78.0187 kg

DRUGS (1)
  1. CELEXA [Suspect]
     Indication: ANXIETY
     Dosage: 40 MG PO QD
     Route: 048
     Dates: start: 20041201

REACTIONS (3)
  - DIARRHOEA [None]
  - DRUG INTOLERANCE [None]
  - PHARMACEUTICAL PRODUCT COMPLAINT [None]
